FAERS Safety Report 16472121 (Version 1)
Quarter: 2019Q2

REPORT INFORMATION
  Report Type: Report from Study
  Country: CA (occurrence: CA)
  Receive Date: 20190625
  Receipt Date: 20190625
  Transmission Date: 20190711
  Serious: Yes (Hospitalization, Other)
  Sender: FDA-Public Use
  Company Number: CA-BEH-2019103382

PATIENT
  Age: 4 Year
  Sex: Female

DRUGS (9)
  1. PREVACID [Concomitant]
     Active Substance: LANSOPRAZOLE
     Dosage: 15 MILLIGRAM, BID
  2. CLONIDINE. [Concomitant]
     Active Substance: CLONIDINE
     Dosage: 1.25 MILLILITER, QD
  3. MOMETASONE [Concomitant]
     Active Substance: MOMETASONE
     Dosage: 50 MICROGRAM, QID
     Route: 050
  4. CLOBAZAM. [Concomitant]
     Active Substance: CLOBAZAM
     Dosage: 10 MILLIGRAM, QD
  5. BISACODYL. [Concomitant]
     Active Substance: BISACODYL
     Dosage: 5 MILLIGRAM, QD
  6. LAX-A-DAY [Concomitant]
     Dosage: 17 GRAM, QD
  7. HIZENTRA [Suspect]
     Active Substance: HUMAN IMMUNOGLOBULIN G
     Indication: PRIMARY IMMUNODEFICIENCY SYNDROME
     Dosage: 2 GRAM, QW
     Route: 058
  8. VALPROIC ACID. [Concomitant]
     Active Substance: VALPROIC ACID
     Dosage: 200 MILLIGRAM, QD
  9. LACTULOSE. [Concomitant]
     Active Substance: LACTULOSE
     Dosage: 15 MILLILITER, QD

REACTIONS (1)
  - Lung infection [Unknown]
